FAERS Safety Report 8819706 (Version 1)
Quarter: 2012Q4

REPORT INFORMATION
  Report Type: 
  Country: BR (occurrence: BR)
  Receive Date: 20121001
  Receipt Date: 20121001
  Transmission Date: 20130627
  Serious: Yes (Other)
  Sender: FDA-Public Use
  Company Number: BR-JNJFOC-20120909370

PATIENT
  Age: 17 Year
  Sex: Male
  Weight: 92 kg

DRUGS (8)
  1. REMICADE [Suspect]
     Indication: PSORIASIS
     Route: 042
     Dates: start: 20120918
  2. REMICADE [Suspect]
     Indication: PSORIASIS
     Route: 042
     Dates: start: 20120804
  3. REMICADE [Suspect]
     Indication: PSORIATIC ARTHROPATHY
     Route: 042
     Dates: start: 20120918
  4. REMICADE [Suspect]
     Indication: PSORIATIC ARTHROPATHY
     Route: 042
     Dates: start: 20120804
  5. ALL OTHER THERAPEUTIC PRODUCT [Concomitant]
     Indication: PSORIASIS
     Route: 065
  6. HIXIZINE [Concomitant]
     Indication: PRURITUS
     Route: 065
  7. HISTAMIN [Concomitant]
     Indication: PRURITUS
     Route: 065
  8. ANTIALLERGIC DRUGS [Concomitant]
     Indication: PREMEDICATION
     Route: 065

REACTIONS (5)
  - Dyspnoea [Recovered/Resolved]
  - Choking [Recovered/Resolved]
  - Infusion related reaction [Recovering/Resolving]
  - Pruritus generalised [Not Recovered/Not Resolved]
  - Dry throat [Not Recovered/Not Resolved]
